FAERS Safety Report 19971914 (Version 3)
Quarter: 2022Q1

REPORT INFORMATION
  Report Type: Spontaneous
  Country: US (occurrence: US)
  Receive Date: 20211020
  Receipt Date: 20220325
  Transmission Date: 20220424
  Serious: Yes (Other)
  Sender: FDA-Public Use
  Company Number: US-CELLTRION INC.-2021US012208

PATIENT

DRUGS (1)
  1. INFLECTRA [Suspect]
     Active Substance: INFLIXIMAB-DYYB
     Indication: Crohn^s disease
     Dosage: 4 VIALS EVERY 4 WEEKS
     Route: 042
     Dates: start: 202107

REACTIONS (12)
  - Genital pain [Unknown]
  - Rheumatoid arthritis [Unknown]
  - Abdominal pain upper [Unknown]
  - Condition aggravated [Unknown]
  - General physical health deterioration [Unknown]
  - Infusion site extravasation [Unknown]
  - Arthralgia [Unknown]
  - Fatigue [Unknown]
  - Nausea [Unknown]
  - Impaired work ability [Unknown]
  - Drug ineffective [Unknown]
  - Product preparation issue [Unknown]
